FAERS Safety Report 20848435 (Version 1)
Quarter: 2022Q2

REPORT INFORMATION
  Report Type: Spontaneous
  Country: US (occurrence: None)
  Receive Date: 20220519
  Receipt Date: 20220519
  Transmission Date: 20220720
  Serious: Yes (Hospitalization, Other)
  Sender: FDA-Public Use
  Company Number: US-PHARMATHEN-GPV2022PHT054927

PATIENT
  Age: 47 Year
  Sex: Female

DRUGS (6)
  1. DIMETHYL FUMARATE [Suspect]
     Active Substance: DIMETHYL FUMARATE
     Indication: Relapsing-remitting multiple sclerosis
     Dosage: 120 MG TWICE A DAY
     Route: 048
  2. EPINEPHRINE [Suspect]
     Active Substance: EPINEPHRINE
     Route: 030
  3. EPINEPHRINE [Suspect]
     Active Substance: EPINEPHRINE
     Route: 041
  4. Solu-Medrol 125 mg [Concomitant]
     Route: 042
  5. ALBUTEROL [Concomitant]
     Active Substance: ALBUTEROL
     Route: 055
  6. PREDNISONE [Concomitant]
     Active Substance: PREDNISONE
     Dosage: 60 MG DAILY
     Route: 048

REACTIONS (2)
  - Drug hypersensitivity [Recovered/Resolved]
  - Stress cardiomyopathy [Recovered/Resolved]
